FAERS Safety Report 25796266 (Version 1)
Quarter: 2025Q3

REPORT INFORMATION
  Report Type: Spontaneous
  Country: US (occurrence: US)
  Receive Date: 20250912
  Receipt Date: 20250912
  Transmission Date: 20251021
  Serious: No
  Sender: PFIZER
  Company Number: US-PFIZER INC-202500180307

PATIENT
  Age: 69 Year
  Sex: Male

DRUGS (1)
  1. SOMAVERT [Suspect]
     Active Substance: PEGVISOMANT
     Route: 058

REACTIONS (4)
  - Arthralgia [Unknown]
  - Hyperhidrosis [Unknown]
  - Photophobia [Unknown]
  - Off label use [Unknown]
